FAERS Safety Report 5142440-1 (Version None)
Quarter: 2006Q4

REPORT INFORMATION
  Report Type: 
  Country: None (occurrence: None)
  Receive Date: 20061030
  Receipt Date: 20061030
  Transmission Date: 20070319
  Serious: Yes (Hospitalization)
  Sender: FDA-Public Use
  Company Number: None

PATIENT
  Age: 64 Year
  Sex: Male

DRUGS (6)
  1. CETUXIMAB (CETUXIMAB) [Suspect]
     Indication: COLORECTAL CANCER METASTATIC
     Dosage: 650 MG IV
     Route: 042
     Dates: start: 20050111, end: 20050111
  2. CETUXIMAB (CETUXIMAB) [Suspect]
     Indication: COLORECTAL CANCER METASTATIC
     Dosage: 650 MG IV
     Route: 042
     Dates: end: 20050713
  3. IRINOTECAN HCL [Suspect]
     Indication: COLORECTAL CANCER METASTATIC
     Dosage: 470 MG IV
     Route: 042
     Dates: start: 20050111, end: 20050713
  4. METFORMIN HCL [Concomitant]
  5. ASTRIX (ACETYLSALICYLIC ACID) [Concomitant]
  6. SOTALOL HCL [Concomitant]

REACTIONS (10)
  - BALANOPOSTHITIS [None]
  - DYSURIA [None]
  - MOUTH ULCERATION [None]
  - PAIN [None]
  - PROTEIN URINE PRESENT [None]
  - RED BLOOD CELLS URINE POSITIVE [None]
  - SKIN FISSURES [None]
  - URINARY INCONTINENCE [None]
  - URINARY TRACT INFECTION [None]
  - URINE ANALYSIS ABNORMAL [None]
